FAERS Safety Report 7463866-7 (Version None)
Quarter: 2011Q2

REPORT INFORMATION
  Report Type: 
  Country: None (occurrence: None)
  Receive Date: 20110506
  Receipt Date: 20110506
  Transmission Date: 20111010
  Serious: Yes (Life-Threatening, Hospitalization)
  Sender: FDA-Public Use
  Company Number: DE-SHIRE-SPV1-2010-00114

PATIENT

DRUGS (6)
  1. ACETAMINOPHEN [Suspect]
     Dosage: 1000 MG, 1X/WEEK
     Route: 048
     Dates: start: 20090501, end: 20091204
  2. L-THYROXIN HENNING [Concomitant]
     Indication: HYPOTHYROIDISM
     Dosage: 75 UG, 1X/DAY:QD
     Route: 048
     Dates: start: 20090501
  3. MESALAMINE [Suspect]
     Indication: COLITIS
     Dosage: 1200 MG, 1X/DAY:QD
     Route: 048
     Dates: start: 20091201, end: 20091208
  4. INTRON A [Suspect]
     Indication: MALIGNANT MELANOMA IN SITU
     Dosage: 90000 IU, 1X/WEEK
     Route: 058
     Dates: start: 20090501, end: 20091204
  5. UREACORT [Concomitant]
     Indication: NEURODERMATITIS
     Dosage: 1 DF, TWICE A WEEK
     Route: 003
     Dates: start: 20070101, end: 20091201
  6. VIANI [Concomitant]
     Indication: ASTHMA
     Dosage: 1 DF, 2X/DAY:BID
     Route: 055
     Dates: start: 19950101

REACTIONS (2)
  - DRUG INTERACTION [None]
  - COOMBS POSITIVE HAEMOLYTIC ANAEMIA [None]
